FAERS Safety Report 10213431 (Version 2)
Quarter: 2014Q2

REPORT INFORMATION
  Report Type: Report from Study
  Country: JP (occurrence: JP)
  Receive Date: 20140603
  Receipt Date: 20140605
  Transmission Date: 20141212
  Serious: Yes (Death)
  Sender: FDA-Public Use
  Company Number: JP-CELGENEUS-087-21660-14055459

PATIENT
  Age: 59 Year
  Sex: Male
  Weight: 58 kg

DRUGS (11)
  1. ABRAXANE [Suspect]
     Indication: GASTRIC CANCER
     Dosage: 163 MILLIGRAM
     Route: 041
     Dates: start: 20140227
  2. ABRAXANE [Suspect]
     Dosage: 130 MILLIGRAM
     Route: 041
     Dates: start: 20140320, end: 20140515
  3. DIOVAN [Concomitant]
     Indication: PRODUCT USED FOR UNKNOWN INDICATION
     Route: 065
  4. AMLODIN [Concomitant]
     Indication: HYPERTENSION
     Dosage: 5 MILLIGRAM
     Route: 048
     Dates: start: 20140518
  5. U-PAN [Concomitant]
     Indication: ANXIETY DISORDER
     Route: 065
     Dates: start: 20140518
  6. GOODMIN [Concomitant]
     Indication: INSOMNIA
     Dosage: .25 MILLIGRAM
     Route: 065
     Dates: end: 20140518
  7. HISHIPHAGEN-C [Concomitant]
     Indication: PRODUCT USED FOR UNKNOWN INDICATION
     Route: 065
     Dates: start: 20140313
  8. GLYCINE [Concomitant]
     Indication: PRODUCT USED FOR UNKNOWN INDICATION
     Route: 065
     Dates: start: 20140313
  9. CYSTEINE [Concomitant]
     Indication: PRODUCT USED FOR UNKNOWN INDICATION
     Route: 065
     Dates: start: 20140313
  10. SENIRAN [Concomitant]
     Indication: ANXIETY DISORDER
     Route: 065
     Dates: start: 20140313, end: 20140518
  11. SEPAZON [Concomitant]
     Indication: ANXIETY DISORDER
     Route: 065
     Dates: start: 20140514, end: 20140518

REACTIONS (1)
  - Completed suicide [Fatal]
